FAERS Safety Report 6941251-1 (Version None)
Quarter: 2010Q3

REPORT INFORMATION
  Report Type: 
  Country: None (occurrence: None)
  Receive Date: 20100825
  Receipt Date: 20100720
  Transmission Date: 20110219
  Serious: No
  Sender: FDA-Public Use
  Company Number: US-BRISTOL-MYERS SQUIBB COMPANY-15201643

PATIENT
  Age: 59 Year
  Sex: Female
  Weight: 83 kg

DRUGS (5)
  1. ONGLYZA [Suspect]
     Dosage: DOSE REDUCED TO 2.5MG
  2. JANUMET [Concomitant]
  3. NOVOLOG [Concomitant]
  4. LEVEMIR [Concomitant]
  5. ACTOS [Concomitant]

REACTIONS (1)
  - HEADACHE [None]
